FAERS Safety Report 25795923 (Version 2)
Quarter: 2025Q4

REPORT INFORMATION
  Report Type: Report from Study
  Country: CA (occurrence: CA)
  Receive Date: 20250912
  Receipt Date: 20251003
  Transmission Date: 20260118
  Serious: Yes (Hospitalization, Other)
  Sender: TAKEDA
  Company Number: CA-TAKEDA-2025TUS079909

PATIENT
  Age: 46 Year
  Sex: Female

DRUGS (13)
  1. VEDOLIZUMAB [Suspect]
     Active Substance: VEDOLIZUMAB
     Indication: Colitis ulcerative
     Dosage: 300 MILLIGRAM
  2. VEDOLIZUMAB [Suspect]
     Active Substance: VEDOLIZUMAB
     Dosage: 300 MILLIGRAM
  3. VEDOLIZUMAB [Suspect]
     Active Substance: VEDOLIZUMAB
     Dosage: 300 MILLIGRAM
  4. VEDOLIZUMAB [Suspect]
     Active Substance: VEDOLIZUMAB
     Dosage: 300 MILLIGRAM
  5. VEDOLIZUMAB [Suspect]
     Active Substance: VEDOLIZUMAB
     Dosage: 300 MILLIGRAM
  6. VEDOLIZUMAB [Suspect]
     Active Substance: VEDOLIZUMAB
     Dosage: 300 MILLIGRAM
  7. VEDOLIZUMAB [Suspect]
     Active Substance: VEDOLIZUMAB
     Dosage: 300 MILLIGRAM, Q4WEEKS
     Dates: start: 20250422
  8. VEDOLIZUMAB [Suspect]
     Active Substance: VEDOLIZUMAB
     Dosage: 300 MILLIGRAM, Q4WEEKS
  9. VEDOLIZUMAB [Suspect]
     Active Substance: VEDOLIZUMAB
     Dosage: 300 MILLIGRAM, Q4WEEKS
  10. PANTOPRAZOLE SODIUM [Suspect]
     Active Substance: PANTOPRAZOLE SODIUM
     Indication: Product used for unknown indication
     Dosage: 40 MILLIGRAM
  11. CORTIFOAM [Concomitant]
     Active Substance: HYDROCORTISONE ACETATE
     Dosage: UNK
  12. CALCIUM [Concomitant]
     Active Substance: CALCIUM
     Dosage: UNK
  13. IRON [Concomitant]
     Active Substance: IRON
     Dosage: UNK

REACTIONS (9)
  - Weight decreased [Unknown]
  - Colitis ulcerative [Unknown]
  - Haematochezia [Not Recovered/Not Resolved]
  - Gastrointestinal infection [Recovered/Resolved]
  - Gastroenteritis salmonella [Recovered/Resolved]
  - Staphylococcal infection [Recovered/Resolved]
  - Diarrhoea [Recovering/Resolving]
  - Drug ineffective [Not Recovered/Not Resolved]
  - Off label use [Unknown]

NARRATIVE: CASE EVENT DATE: 20250422
